FAERS Safety Report 4848804-5 (Version None)
Quarter: 2005Q4

REPORT INFORMATION
  Report Type: 
  Country: None (occurrence: None)
  Receive Date: 20051115
  Receipt Date: 20050822
  Transmission Date: 20060501
  Serious: No
  Sender: FDA-Public Use
  Company Number: S05-USA-04138-01

PATIENT
  Age: 77 Year
  Sex: Female

DRUGS (10)
  1. NAMENDA [Suspect]
     Dosage: 10 MG BID PO
     Route: 048
     Dates: start: 20050718
  2. NAMENDA [Suspect]
     Dosage: 5 MG QD PO
     Route: 048
     Dates: start: 20050627, end: 20050703
  3. NAMENDA [Suspect]
     Dosage: 5 MG BID PO
     Route: 048
     Dates: start: 20050704, end: 20050710
  4. NAMENDA [Suspect]
     Dosage: 15 MG QD PO
     Route: 048
     Dates: start: 20050711, end: 20050717
  5. TRAZODONE [Concomitant]
  6. PROZAC [Concomitant]
  7. ZYRTEC [Concomitant]
  8. CALCIUM GLUCONATE [Concomitant]
  9. VITAMIN B12 [Concomitant]
  10. IBUPROFEN [Concomitant]

REACTIONS (1)
  - DIZZINESS [None]
